FAERS Safety Report 4693855-7 (Version None)
Quarter: 2005Q2

REPORT INFORMATION
  Report Type: 
  Country: None (occurrence: None)
  Receive Date: 20050615
  Receipt Date: 20050602
  Transmission Date: 20051028
  Serious: Yes (Hospitalization, Other)
  Sender: FDA-Public Use
  Company Number: 2005085451

PATIENT
  Sex: 0
  Weight: 83.9154 kg

DRUGS (7)
  1. CELEBREX [Suspect]
     Indication: ARTHRITIS
     Dosage: 200 MG (200 MG, 1 IN 1 D), ORAL
     Route: 048
  2. ALL OTHER THERAPEUTIC PRODUCTS (ALL OTHER THERAPEUTIC PRODUCTS) [Suspect]
     Indication: PNEUMONIA
  3. WARFARIN SODIUM [Concomitant]
  4. DIGOXIN [Concomitant]
  5. DILTIAZEM [Concomitant]
  6. RANITIDINE HCL [Concomitant]
  7. ALBUTEROL [Concomitant]

REACTIONS (4)
  - HAEMORRHAGE [None]
  - PAIN [None]
  - PNEUMONIA [None]
  - WRONG DRUG ADMINISTERED [None]
